FAERS Safety Report 10358848 (Version 1)
Quarter: 2014Q3

REPORT INFORMATION
  Report Type: Spontaneous
  Country: US (occurrence: None)
  Receive Date: 20140730
  Receipt Date: 20140730
  Transmission Date: 20150326
  Serious: No
  Sender: FDA-Public Use
  Company Number: None

PATIENT
  Age: 60 Year
  Sex: Female
  Weight: 53.52 kg

DRUGS (1)
  1. ZIOPTAN [Suspect]
     Active Substance: TAFLUPROST
     Indication: GLAUCOMA
     Dosage: 1 DRP ONCE DAILY INTO THE EYE
     Route: 047
     Dates: start: 20140728, end: 20140729

REACTIONS (6)
  - Product substitution issue [None]
  - Eye pruritus [None]
  - Drug hypersensitivity [None]
  - Product quality issue [None]
  - Eye pain [None]
  - Ocular hyperaemia [None]

NARRATIVE: CASE EVENT DATE: 20140729
